FAERS Safety Report 8826605 (Version 2)
Quarter: 2012Q4

REPORT INFORMATION
  Report Type: 
  Country: US (occurrence: US)
  Receive Date: 20121005
  Receipt Date: 20121026
  Transmission Date: 20130627
  Serious: No
  Sender: FDA-Public Use
  Company Number: US-PFIZER INC-2012244202

PATIENT
  Age: 68 Year
  Sex: Female
  Weight: 53.97 kg

DRUGS (2)
  1. ADVIL PM [Suspect]
     Indication: SLEEP DISORDER
     Dosage: 200 mg, once
     Route: 048
     Dates: start: 20121001
  2. CRESTOR [Concomitant]
     Indication: BLOOD CHOLESTEROL ABNORMAL
     Dosage: 10 mg, daily

REACTIONS (4)
  - Drug ineffective [Unknown]
  - Terminal insomnia [Unknown]
  - Feeling abnormal [Not Recovered/Not Resolved]
  - Fear [Unknown]
